FAERS Safety Report 20585705 (Version 1)
Quarter: 2022Q1

REPORT INFORMATION
  Report Type: Report from Study
  Country: MX (occurrence: MX)
  Receive Date: 20220312
  Receipt Date: 20220312
  Transmission Date: 20220423
  Serious: Yes (Other)
  Sender: FDA-Public Use
  Company Number: MX-ABBOTT-2022A-1346480

PATIENT
  Age: 4 Year
  Sex: Female
  Weight: 18.4 kg

DRUGS (4)
  1. EPIVAL [Suspect]
     Active Substance: DIVALPROEX SODIUM
     Indication: Seizure
     Dosage: 1 - 2 - 0?DOSE INCREASED
     Route: 048
     Dates: start: 2015
  2. VITAMINS [Suspect]
     Active Substance: VITAMINS
     Indication: Weight decreased
     Dosage: DAILY AT THE MORNINGS, POWDER
     Route: 065
     Dates: start: 202110
  3. VITAMINS [Suspect]
     Active Substance: VITAMINS
     Indication: Weight decreased
     Dosage: EVERY THIRD DAY
     Route: 065
     Dates: start: 202111
  4. VITAMINS NOS [Concomitant]
     Active Substance: VITAMINS
     Indication: Weight increased

REACTIONS (4)
  - Cerebral palsy [Unknown]
  - Seizure [Recovered/Resolved]
  - Insomnia [Unknown]
  - Constipation [Recovered/Resolved]

NARRATIVE: CASE EVENT DATE: 20190101
